FAERS Safety Report 15346891 (Version 1)
Quarter: 2018Q3

REPORT INFORMATION
  Report Type: Spontaneous
  Country: US (occurrence: US)
  Receive Date: 20180904
  Receipt Date: 20180904
  Transmission Date: 20181010
  Serious: Yes (Hospitalization, Other)
  Sender: FDA-Public Use
  Company Number: US-BAYER-2018-164553

PATIENT
  Age: 4 Year
  Sex: Female

DRUGS (1)
  1. MIRALAX [Suspect]
     Active Substance: POLYETHYLENE GLYCOL 3350
     Indication: CONSTIPATION
     Dosage: 1 TO 2 CAPFUL A DAY EVERY DAY
     Dates: end: 20180808

REACTIONS (8)
  - Arthralgia [Recovered/Resolved with Sequelae]
  - Drug administered to patient of inappropriate age [None]
  - Migraine [Recovered/Resolved with Sequelae]
  - Anger [Recovered/Resolved with Sequelae]
  - Obsessive-compulsive disorder [Recovered/Resolved with Sequelae]
  - Tourette^s disorder [Recovered/Resolved]
  - Depression [Recovered/Resolved with Sequelae]
  - Product use in unapproved indication [None]

NARRATIVE: CASE EVENT DATE: 20100101
